FAERS Safety Report 4439498-1 (Version None)
Quarter: 2004Q3

REPORT INFORMATION
  Report Type: 
  Country: None (occurrence: None)
  Receive Date: 20040901
  Receipt Date: 20040901
  Transmission Date: 20050211
  Serious: Yes (Hospitalization)
  Sender: FDA-Public Use
  Company Number: None

PATIENT
  Sex: Male
  Weight: 18.1439 kg

DRUGS (1)
  1. AMOXIL [Suspect]
     Indication: PHARYNGITIS
     Dosage: PO [ PRIOR TO ADMISSION]
     Route: 048

REACTIONS (1)
  - SWOLLEN TONGUE [None]
